FAERS Safety Report 11061499 (Version 1)
Quarter: 2015Q2

REPORT INFORMATION
  Report Type: Spontaneous
  Country: US (occurrence: None)
  Receive Date: 20150423
  Receipt Date: 20150423
  Transmission Date: 20150821
  Serious: Yes (Other)
  Sender: FDA-Public Use
  Company Number: None

PATIENT
  Age: 33 Year
  Sex: Female
  Weight: 65.77 kg

DRUGS (2)
  1. TOPAMAX [Suspect]
     Active Substance: TOPIRAMATE
     Indication: MIGRAINE WITH AURA
     Dosage: 1 PILL TWICE DAILY TAKEN BY MOUTH
     Route: 048
     Dates: start: 20141027, end: 20141229
  2. TOPAMAX [Suspect]
     Active Substance: TOPIRAMATE
     Dosage: 1 PILL TWICE DAILY TAKEN BY MOUTH
     Route: 048
     Dates: start: 20141027, end: 20141229

REACTIONS (6)
  - Apathy [None]
  - Ageusia [None]
  - Amnesia [None]
  - Tinnitus [None]
  - Aggression [None]
  - Aphasia [None]

NARRATIVE: CASE EVENT DATE: 20141224
